FAERS Safety Report 8016042-3 (Version None)
Quarter: 2011Q4

REPORT INFORMATION
  Report Type: 
  Country: None (occurrence: None)
  Receive Date: 20111230
  Receipt Date: 20111230
  Transmission Date: 20120403
  Serious: Yes (Other)
  Sender: FDA-Public Use
  Company Number: None

PATIENT
  Age: 51 Year
  Sex: Female
  Weight: 95.254 kg

DRUGS (1)
  1. COPAXONE [Suspect]
     Indication: MULTIPLE SCLEROSIS
     Dosage: INJECT 1 SYRINGE  20MG=1 ML
     Route: 059
     Dates: start: 20101219, end: 20111218

REACTIONS (12)
  - DYSPHAGIA [None]
  - DIZZINESS [None]
  - CHEST DISCOMFORT [None]
  - LIP DISCOLOURATION [None]
  - HYPERHIDROSIS [None]
  - APHASIA [None]
  - ERYTHEMA [None]
  - CHILLS [None]
  - PANIC ATTACK [None]
  - FAECAL INCONTINENCE [None]
  - CHEST PAIN [None]
  - FEELING ABNORMAL [None]
